FAERS Safety Report 8467013-4 (Version None)
Quarter: 2012Q2

REPORT INFORMATION
  Report Type: 
  Country: None (occurrence: None)
  Receive Date: 20120625
  Receipt Date: 20120625
  Transmission Date: 20120825
  Serious: Yes (Other)
  Sender: FDA-Public Use
  Company Number: None

PATIENT
  Age: 51 Year
  Sex: Female
  Weight: 49.8957 kg

DRUGS (2)
  1. CYMBALTA [Suspect]
     Indication: DEPRESSION
     Dosage: 90 MG, 1 X DAY, INJ
     Dates: start: 20101001, end: 20120324
  2. CYMBALTA [Suspect]
     Indication: PAIN
     Dosage: 90 MG, 1 X DAY, INJ
     Dates: start: 20101001, end: 20120324

REACTIONS (2)
  - MOUTH ULCERATION [None]
  - PAIN [None]
